FAERS Safety Report 22094279 (Version 6)
Quarter: 2025Q2

REPORT INFORMATION
  Report Type: Report from Study
  Country: CA (occurrence: CA)
  Receive Date: 20230314
  Receipt Date: 20250528
  Transmission Date: 20250717
  Serious: Yes (Other)
  Sender: BIOCON
  Company Number: CA-MYLANLABS-2023M1027018

PATIENT

DRUGS (4)
  1. HULIO [Suspect]
     Active Substance: ADALIMUMAB-FKJP
     Indication: Rheumatoid arthritis
     Dosage: 40 MG, BIWEEKLY
     Route: 058
     Dates: start: 20220104
  2. HULIO [Suspect]
     Active Substance: ADALIMUMAB-FKJP
     Route: 058
     Dates: start: 20230104
  3. HULIO [Suspect]
     Active Substance: ADALIMUMAB-FKJP
     Route: 058
     Dates: start: 20230104
  4. UNSPECIFIED INGREDIENT [Concomitant]
     Active Substance: UNSPECIFIED INGREDIENT
     Indication: Product used for unknown indication
     Route: 065

REACTIONS (7)
  - Rheumatoid arthritis [Unknown]
  - Arthralgia [Unknown]
  - Discomfort [Unknown]
  - Headache [Unknown]
  - Injection site pain [Unknown]
  - Off label use [Unknown]
  - Drug ineffective [Unknown]
